FAERS Safety Report 7407779-5 (Version None)
Quarter: 2011Q2

REPORT INFORMATION
  Report Type: 
  Country: None (occurrence: None)
  Receive Date: 20110412
  Receipt Date: 20110329
  Transmission Date: 20111010
  Serious: Yes (Congenital Anomaly)
  Sender: FDA-Public Use
  Company Number: US-MYLANLABS-2011S1006829

PATIENT
  Sex: Female

DRUGS (4)
  1. METHIMAZOLE [Suspect]
     Dosage: DOSAGE REDUCED FROM 40MG ONCE DAILY AT 37 WEEKS GESTATION
     Route: 064
  2. AMFETAMINE [Concomitant]
     Route: 065
  3. PROPRANOLOL [Concomitant]
     Route: 065
  4. METHIMAZOLE [Suspect]
     Indication: BASEDOW'S DISEASE
     Dosage: DOSAGE REDUCED TO 10MG ONCE DAILY AT 37 WEEKS GESTATION
     Route: 064

REACTIONS (5)
  - CONGENITAL ANOMALY [None]
  - DRUG EXPOSURE DURING PREGNANCY [None]
  - DYSMORPHISM [None]
  - CHOANAL ATRESIA [None]
  - CLINODACTYLY [None]
